FAERS Safety Report 12302695 (Version 1)
Quarter: 2016Q2

REPORT INFORMATION
  Report Type: Spontaneous
  Country: US (occurrence: US)
  Receive Date: 20160425
  Receipt Date: 20160425
  Transmission Date: 20160815
  Serious: No
  Sender: FDA-Public Use
  Company Number: US-SA-2016SA056467

PATIENT
  Sex: Male

DRUGS (1)
  1. LOVENOX [Suspect]
     Active Substance: ENOXAPARIN SODIUM
     Route: 065

REACTIONS (9)
  - Injection site warmth [Unknown]
  - Injection site haemorrhage [Unknown]
  - Injection site bruising [Unknown]
  - Injection site erythema [Unknown]
  - Cough [Unknown]
  - Injection site pain [Unknown]
  - Injection site nodule [Unknown]
  - Injection site irritation [Unknown]
  - Injection site pruritus [Unknown]
